FAERS Safety Report 4713357-9 (Version None)
Quarter: 2005Q3

REPORT INFORMATION
  Report Type: 
  Country: None (occurrence: None)
  Receive Date: 20050713
  Receipt Date: 20050620
  Transmission Date: 20060218
  Serious: No
  Sender: FDA-Public Use
  Company Number: PHFR2005GB02211

PATIENT
  Age: 25 Year
  Sex: Female

DRUGS (5)
  1. CLOZARIL [Suspect]
     Indication: SCHIZOPHRENIA
     Dosage: 500MG/DAY
     Route: 048
     Dates: start: 20000127
  2. VALPROATE SODIUM [Concomitant]
     Dosage: 1200MG/DAY
     Route: 048
  3. REBOXETINE [Concomitant]
     Dosage: 4MG/DAY
     Route: 048
  4. ZOLPIDEM [Concomitant]
     Dosage: 10MG PRN
  5. DIAZEPAM [Concomitant]
     Dosage: 10MG PRN
     Route: 048

REACTIONS (2)
  - MEAN CELL HAEMOGLOBIN INCREASED [None]
  - MEAN CELL VOLUME INCREASED [None]
